FAERS Safety Report 7054757-4 (Version None)
Quarter: 2010Q4

REPORT INFORMATION
  Report Type: 
  Country: None (occurrence: None)
  Receive Date: 20101018
  Receipt Date: 20101001
  Transmission Date: 20110411
  Serious: Yes (Hospitalization)
  Sender: FDA-Public Use
  Company Number: 2010004198

PATIENT
  Age: 73 Year
  Sex: Male

DRUGS (2)
  1. ERLOTINIB HYDROCHLORIDE [Suspect]
     Indication: ADENOCARCINOMA PANCREAS
     Dosage: (100 MG,QD),ORAL
     Route: 048
     Dates: start: 20100610, end: 20100925
  2. GEMCITABINE [Suspect]
     Dosage: (1000 MBQ,DAYS 1,8, AND 15),INTRAVENOUS
     Route: 042
     Dates: start: 20100610, end: 20100915

REACTIONS (8)
  - DRUG TOXICITY [None]
  - DYSPNOEA [None]
  - HYPOXIA [None]
  - INFECTION [None]
  - MYOCARDIAL INFARCTION [None]
  - MYOCARDIAL ISCHAEMIA [None]
  - PNEUMONITIS [None]
  - PULMONARY OEDEMA [None]
